FAERS Safety Report 4664126-X (Version None)
Quarter: 2005Q2

REPORT INFORMATION
  Report Type: 
  Country: None (occurrence: None)
  Receive Date: 20050516
  Receipt Date: 20050516
  Transmission Date: 20051028
  Serious: Yes (Other)
  Sender: FDA-Public Use
  Company Number: None

PATIENT
  Age: 65 Year
  Sex: Male
  Weight: 79 kg

DRUGS (1)
  1. LINEZOLID [Suspect]
     Dates: start: 20050115, end: 20050212

REACTIONS (1)
  - ANAEMIA [None]
